FAERS Safety Report 5602072-5 (Version None)
Quarter: 2008Q1

REPORT INFORMATION
  Report Type: 
  Country: None (occurrence: None)
  Receive Date: 20080122
  Receipt Date: 20080108
  Transmission Date: 20080703
  Serious: Yes (Hospitalization)
  Sender: FDA-Public Use
  Company Number: MEDI-0006391

PATIENT
  Sex: Male
  Weight: 11.6 kg

DRUGS (6)
  1. SYNAGIS [Suspect]
     Indication: ANTIVIRAL PROPHYLAXIS
     Dosage: 174 MG, INTRAMUSCULAR : 178.5 MG, INTRAMUSCULAR
     Route: 030
     Dates: start: 20071130, end: 20071221
  2. SYNAGIS [Suspect]
     Indication: ANTIVIRAL PROPHYLAXIS
     Dosage: 174 MG, INTRAMUSCULAR : 178.5 MG, INTRAMUSCULAR
     Route: 030
     Dates: start: 20071130
  3. FLOVENT [Concomitant]
  4. SINGULAIRE (MONTELUKAST) [Concomitant]
  5. ACETAMINOPHEN [Concomitant]
  6. IBUPROFEN [Concomitant]

REACTIONS (3)
  - ASTHMA [None]
  - CONDITION AGGRAVATED [None]
  - LUNG INFILTRATION [None]
